FAERS Safety Report 23189363 (Version 2)
Quarter: 2023Q4

REPORT INFORMATION
  Report Type: Spontaneous
  Country: IT (occurrence: IT)
  Receive Date: 20231116
  Receipt Date: 20231123
  Transmission Date: 20240109
  Serious: Yes (Hospitalization)
  Sender: FDA-Public Use
  Company Number: IT-TEVA-2023-IT-2944588

PATIENT
  Age: 27 Year
  Sex: Female
  Weight: 144 kg

DRUGS (16)
  1. DESMOPRESSIN [Suspect]
     Active Substance: DESMOPRESSIN
     Indication: Diabetes insipidus
     Dosage: 180 MICROGRAM DAILY; ONCE A DAY
     Route: 065
  2. LEVETIRACETAM [Suspect]
     Active Substance: LEVETIRACETAM
     Indication: Epilepsy
     Dosage: 2500 MILLIGRAM DAILY; ONCE A DAY
     Route: 065
  3. LEVETIRACETAM [Suspect]
     Active Substance: LEVETIRACETAM
     Dosage: 3500 MILLIGRAM DAILY; ONCE A DAY
     Route: 065
     Dates: start: 2022
  4. LEVETIRACETAM [Suspect]
     Active Substance: LEVETIRACETAM
     Dosage: 2500 MILLIGRAM DAILY; ONCE A DAY
     Route: 065
     Dates: start: 2022
  5. CORTISONE ACETATE [Concomitant]
     Active Substance: CORTISONE ACETATE
     Indication: Hypopituitarism
     Dosage: 31.25 MILLIGRAM DAILY; ONCE A DAY
     Route: 065
  6. CORTISONE ACETATE [Concomitant]
     Active Substance: CORTISONE ACETATE
     Dosage: 50 MILLIGRAM DAILY; ONCE A DAY
     Route: 065
     Dates: start: 2022
  7. LEVOTHYROXINE [Concomitant]
     Active Substance: LEVOTHYROXINE
     Indication: Hypopituitarism
     Dosage: 200 MICROGRAM DAILY; ONCE A DAY
     Route: 065
  8. SOMATROPIN [Concomitant]
     Active Substance: SOMATROPIN
     Indication: Hypopituitarism
     Dosage: .4 MILLIGRAM DAILY; 5 DAYS PER WEEK, ONCE A DAY
     Route: 065
  9. LACOSAMIDE [Concomitant]
     Active Substance: LACOSAMIDE
     Indication: Epilepsy
     Dosage: 200 MILLIGRAM DAILY; ONCE A DAY
     Route: 065
  10. VALPROATE SODIUM [Concomitant]
     Active Substance: VALPROATE SODIUM
     Indication: Epilepsy
     Dosage: 750 MILLIGRAM DAILY; ONCE A DAY
     Route: 065
  11. PERAMPANEL [Concomitant]
     Active Substance: PERAMPANEL
     Indication: Epilepsy
     Dosage: 8 MILLIGRAM DAILY; ONCE A DAY
     Route: 065
  12. PERAMPANEL [Concomitant]
     Active Substance: PERAMPANEL
     Dosage: 16 MILLIGRAM DAILY; ONCE A DAY
     Route: 065
     Dates: start: 2022
  13. LAMOTRIGINE [Concomitant]
     Active Substance: LAMOTRIGINE
     Indication: Epilepsy
     Route: 065
     Dates: start: 2022, end: 20220523
  14. CLONAZEPAM [Concomitant]
     Active Substance: CLONAZEPAM
     Indication: Epilepsy
     Route: 065
     Dates: start: 2022
  15. LORAZEPAM [Concomitant]
     Active Substance: LORAZEPAM
     Indication: Epilepsy
     Dosage: 4 MG
     Route: 065
     Dates: start: 2022
  16. LORAZEPAM [Concomitant]
     Active Substance: LORAZEPAM
     Indication: Status epilepticus

REACTIONS (4)
  - Hypernatraemia [Recovered/Resolved]
  - Urine output increased [Recovered/Resolved]
  - Cerebral salt-wasting syndrome [Unknown]
  - Product dose omission issue [Unknown]

NARRATIVE: CASE EVENT DATE: 20220101
